FAERS Safety Report 7182616 (Version 4)
Quarter: 2013Q2

REPORT INFORMATION
  Report Type: Report from Study
  Country: JP (occurrence: JP)
  Receive Date: 20091120
  Receipt Date: 20130425
  Transmission Date: 20140414
  Serious: Yes (Other)
  Sender: FDA-Public Use
  Company Number: JP-NOVOPROD-300606

PATIENT
  Age: 8 Year
  Sex: Male
  Weight: 20 kg

DRUGS (6)
  1. NORDITROPIN NORDIFLEX [Suspect]
     Indication: HYPOPITUITARISM
     Dosage: 0.5-0.8 MG, QD
     Route: 058
     Dates: start: 20070804
  2. NORDITROPIN NORDIFLEX [Suspect]
     Dosage: 0.7 MG, QD
     Route: 058
     Dates: start: 20110730
  3. NORDITROPIN NORDIFLEX [Suspect]
     Dosage: 0.8 MG, QD
     Dates: start: 20130316
  4. CORTRIL                            /00028601/ [Concomitant]
     Dosage: 14 MG, QD
     Route: 048
     Dates: start: 20050825
  5. DESMOPRESSIN [Concomitant]
     Dosage: 10 MCG, QD
     Route: 045
     Dates: start: 20050818
  6. THYRADIN [Concomitant]
     Dosage: 50-65 MCG, QD
     Route: 048
     Dates: start: 200711

REACTIONS (1)
  - Craniopharyngioma [Not Recovered/Not Resolved]
